FAERS Safety Report 5296701-6 (Version None)
Quarter: 2007Q2

REPORT INFORMATION
  Report Type: 
  Country: None (occurrence: None)
  Receive Date: 20070413
  Receipt Date: 20070403
  Transmission Date: 20071010
  Serious: Yes (Other)
  Sender: FDA-Public Use
  Company Number: BE-ABBOTT-07P-013-0363994-00

PATIENT
  Age: 87 Year
  Sex: Female

DRUGS (1)
  1. DEPAKENE [Suspect]
     Indication: CONVULSION PROPHYLAXIS
     Route: 065

REACTIONS (7)
  - BLOOD SODIUM DECREASED [None]
  - DEPRESSED MOOD [None]
  - ELECTROENCEPHALOGRAM ABNORMAL [None]
  - EMOTIONAL DISORDER [None]
  - HYPERAMMONAEMIA [None]
  - SOMNOLENCE [None]
  - SYNCOPE [None]
